FAERS Safety Report 23108042 (Version 2)
Quarter: 2023Q4

REPORT INFORMATION
  Report Type: Spontaneous
  Country: IN (occurrence: IN)
  Receive Date: 20231026
  Receipt Date: 20231103
  Transmission Date: 20240109
  Serious: Yes (Hospitalization, Other)
  Sender: FDA-Public Use
  Company Number: IN-JNJFOC-20231043220

PATIENT
  Age: 3 Decade
  Sex: Female

DRUGS (3)
  1. SPORANOX [Suspect]
     Active Substance: ITRACONAZOLE
     Indication: Bronchopulmonary aspergillosis allergic
     Route: 048
  2. BUDESONIDE [Interacting]
     Active Substance: BUDESONIDE
     Indication: Asthma
     Dosage: IN DIVIDED DOSES
  3. FORMOTEROL [Concomitant]
     Active Substance: FORMOTEROL
     Indication: Asthma
     Dosage: IN DIVIDED DOSES

REACTIONS (3)
  - Cushing^s syndrome [Recovered/Resolved]
  - Drug interaction [Recovered/Resolved]
  - Secondary adrenocortical insufficiency [Recovered/Resolved]
